FAERS Safety Report 24680693 (Version 1)
Quarter: 2024Q4

REPORT INFORMATION
  Report Type: Spontaneous
  Country: CH (occurrence: CH)
  Receive Date: 20241129
  Receipt Date: 20241129
  Transmission Date: 20250115
  Serious: Yes (Hospitalization)
  Sender: GUERBET
  Company Number: None

PATIENT
  Sex: Female
  Weight: 2.265 kg

DRUGS (2)
  1. DOTAREM [Suspect]
     Active Substance: GADOTERATE MEGLUMINE
     Indication: Magnetic resonance imaging
     Route: 064
     Dates: start: 20230922, end: 20230922
  2. PLAQUENIL [Concomitant]
     Active Substance: HYDROXYCHLOROQUINE SULFATE
     Indication: Sjogren^s syndrome
     Route: 064
     Dates: start: 202309

REACTIONS (4)
  - Foetal exposure during pregnancy [Recovered/Resolved]
  - Hypothermia neonatal [Recovered/Resolved]
  - Foetal growth restriction [Recovering/Resolving]
  - Low birth weight baby [Unknown]

NARRATIVE: CASE EVENT DATE: 20230922
